FAERS Safety Report 10077049 (Version 1)
Quarter: 2014Q2

REPORT INFORMATION
  Report Type: Spontaneous
  Country: DE (occurrence: DE)
  Receive Date: 20140414
  Receipt Date: 20140414
  Transmission Date: 20141212
  Serious: Yes (Congenital Anomaly)
  Sender: FDA-Public Use
  Company Number: DE-MYLANLABS-2014S1007498

PATIENT
  Age: 0 Year
  Sex: Male
  Weight: 3.04 kg

DRUGS (2)
  1. VENLAFAXINE [Suspect]
     Indication: DEPRESSION
     Dosage: 150 [MG/D ]/ 1.TRIM. 150MG/D, 2.TRIM. 150/75MG/D ALTERNATING, 3.TRIM. 150MG/D
     Route: 064
     Dates: start: 20130113, end: 20131016
  2. FOLIO FORTE [Concomitant]
     Indication: PROPHYLAXIS OF NEURAL TUBE DEFECT
     Dosage: 0.8 [MG/D ]/ 1.TRIM. 0.8MG/D, THEN 0.4MG/D
     Route: 064
     Dates: start: 20130113, end: 20131016

REACTIONS (2)
  - Talipes [Recovering/Resolving]
  - Foetal exposure during pregnancy [Recovering/Resolving]
